FAERS Safety Report 25934769 (Version 2)
Quarter: 2025Q4

REPORT INFORMATION
  Report Type: Report from Study
  Country: US (occurrence: US)
  Receive Date: 20251017
  Receipt Date: 20251118
  Transmission Date: 20260119
  Serious: Yes (Hospitalization, Other)
  Sender: RANBAXY
  Company Number: US-SUN PHARMACEUTICAL INDUSTRIES LTD-2025R1-532409

PATIENT
  Sex: Female

DRUGS (7)
  1. ATORVASTATIN CALCIUM [Suspect]
     Active Substance: ATORVASTATIN CALCIUM
     Indication: Blood cholesterol increased
     Dosage: UNK NOT THE FULL DOSES OF MEDICATIONS
     Route: 065
     Dates: start: 20250920, end: 20250921
  2. ATORVASTATIN CALCIUM [Suspect]
     Active Substance: ATORVASTATIN CALCIUM
     Dosage: UNK (BACK UP TO FULL DOSAGE A 09/22/2025 TO UNK LITTLE AT A TIME)
     Route: 065
     Dates: start: 20250922
  3. OFEV [Suspect]
     Active Substance: NINTEDANIB
     Indication: Product used for unknown indication
     Dosage: UNK (NOT THE FULL DOSES OF MEDICATIONS)
     Route: 065
     Dates: start: 202509, end: 20250921
  4. OFEV [Suspect]
     Active Substance: NINTEDANIB
     Dosage: UNK (BACK UP TO FULL DOSAGE A 09/22/2025 TO LITTLE AT A TIME)
     Route: 065
     Dates: start: 20250922
  5. PLAVIX [Suspect]
     Active Substance: CLOPIDOGREL BISULFATE
     Indication: Product used for unknown indication
     Dosage: UNK (NOT THE FULL DOSES OF MEDICATIONS)
     Route: 065
     Dates: start: 202509, end: 20250921
  6. PLAVIX [Suspect]
     Active Substance: CLOPIDOGREL BISULFATE
     Dosage: UNK (BACK UP TO FULL DOSAGE A LITTLE AT A TIME)
     Route: 065
     Dates: start: 20250922
  7. TREPROSTINIL SODIUM [Suspect]
     Active Substance: TREPROSTINIL SODIUM
     Indication: Product used for unknown indication
     Dosage: UNK (0.6 MG/ML)
     Dates: start: 20241218

REACTIONS (3)
  - Cerebrovascular accident [Not Recovered/Not Resolved]
  - Gastrointestinal disorder [Not Recovered/Not Resolved]
  - Diarrhoea [Not Recovered/Not Resolved]
